FAERS Safety Report 6359758-7 (Version None)
Quarter: 2009Q3

REPORT INFORMATION
  Report Type: 
  Country: None (occurrence: None)
  Receive Date: 20090917
  Receipt Date: 20090907
  Transmission Date: 20100115
  Serious: Yes (Hospitalization)
  Sender: FDA-Public Use
  Company Number: DE-ELI_LILLY_AND_COMPANY-DE200906001698

PATIENT
  Sex: Male
  Weight: 17 kg

DRUGS (4)
  1. YENTREVE [Suspect]
     Dosage: 40 MG X 1 TABLET
     Route: 048
     Dates: start: 20090605, end: 20090605
  2. ASPIRIN [Concomitant]
     Dosage: 100 MG X 1
     Route: 048
     Dates: start: 20090605, end: 20090605
  3. L-THYROXIN [Concomitant]
     Dosage: 1 TABLET, UNK
     Route: 048
     Dates: start: 20090605, end: 20090605
  4. NEBILET [Concomitant]
     Dosage: 5 MG X 2
     Route: 048
     Dates: start: 20090605, end: 20090605

REACTIONS (2)
  - ACCIDENTAL EXPOSURE [None]
  - ACCIDENTAL OVERDOSE [None]
